FAERS Safety Report 10264310 (Version 1)
Quarter: 2014Q2

REPORT INFORMATION
  Report Type: Spontaneous
  Country: US (occurrence: US)
  Receive Date: 20140627
  Receipt Date: 20140627
  Transmission Date: 20141212
  Serious: No
  Sender: FDA-Public Use
  Company Number: US-GLAXOSMITHKLINE-A1042309A

PATIENT
  Age: 45 Year
  Sex: Female

DRUGS (1)
  1. ZYBAN [Suspect]
     Indication: PRODUCT USED FOR UNKNOWN INDICATION
     Route: 065
     Dates: start: 2012

REACTIONS (3)
  - Mental disorder [Unknown]
  - Emotional distress [Unknown]
  - Crying [Unknown]
